FAERS Safety Report 19417512 (Version 6)
Quarter: 2021Q3

REPORT INFORMATION
  Report Type: Report from Study
  Country: US (occurrence: US)
  Receive Date: 20210615
  Receipt Date: 20210828
  Transmission Date: 20211014
  Serious: No
  Sender: FDA-Public Use
  Company Number: NVSC2021US131209

PATIENT
  Sex: Male

DRUGS (2)
  1. ENTRESTO [Suspect]
     Active Substance: SACUBITRIL\VALSARTAN
     Indication: CARDIAC FAILURE
  2. ENTRESTO [Suspect]
     Active Substance: SACUBITRIL\VALSARTAN
     Indication: CARDIAC FAILURE
     Dosage: [24/26 MG (0.5 TAB), BID]
     Route: 065
     Dates: start: 20210517

REACTIONS (4)
  - Wrong technique in product usage process [Not Recovered/Not Resolved]
  - Cough [Unknown]
  - Throat clearing [Unknown]
  - Decreased activity [Unknown]
